FAERS Safety Report 9224415 (Version 1)
Quarter: 2013Q2

REPORT INFORMATION
  Report Type: Spontaneous
  Country: US (occurrence: US)
  Receive Date: 20130411
  Receipt Date: 20130411
  Transmission Date: 20140414
  Serious: Yes (Other)
  Sender: FDA-Public Use
  Company Number: US-BAYER-2013-043860

PATIENT
  Age: 24 Year
  Sex: Female

DRUGS (3)
  1. YAZ [Suspect]
  2. MULTIVITAMINS [Concomitant]
  3. IRON SUPPLEMENT [Concomitant]
     Dosage: TWICE  A DAY
     Route: 048

REACTIONS (2)
  - Pulmonary embolism [Recovering/Resolving]
  - Deep vein thrombosis [None]
